FAERS Safety Report 5625071-6 (Version None)
Quarter: 2008Q1

REPORT INFORMATION
  Report Type: 
  Country: None (occurrence: None)
  Receive Date: 20080213
  Receipt Date: 20080201
  Transmission Date: 20080703
  Serious: Yes (Other)
  Sender: FDA-Public Use
  Company Number: DE-GILEAD-2008-0015218

PATIENT
  Age: 45 Year
  Sex: Male

DRUGS (2)
  1. TRUVADA [Suspect]
     Dates: start: 20050905, end: 20070111
  2. TRUVADA [Suspect]
     Dates: start: 20070405

REACTIONS (2)
  - BLOOD CREATININE INCREASED [None]
  - BLOOD UREA INCREASED [None]
